FAERS Safety Report 6665571-3 (Version None)
Quarter: 2010Q2

REPORT INFORMATION
  Report Type: 
  Country: None (occurrence: None)
  Receive Date: 20100402
  Receipt Date: 20100322
  Transmission Date: 20101027
  Serious: Yes (Hospitalization, Other)
  Sender: FDA-Public Use
  Company Number: US-PFIZER INC-2010037853

PATIENT
  Age: 54 Year

DRUGS (1)
  1. CHANTIX [Suspect]
     Dosage: UNK
     Dates: start: 20100201, end: 20100301

REACTIONS (11)
  - AGGRESSION [None]
  - AMMONIA ABNORMAL [None]
  - DELUSIONAL PERCEPTION [None]
  - DIARRHOEA [None]
  - FEELING ABNORMAL [None]
  - FREQUENT BOWEL MOVEMENTS [None]
  - HEPATIC ENZYME ABNORMAL [None]
  - LIVER INJURY [None]
  - MEMORY IMPAIRMENT [None]
  - NAUSEA [None]
  - VOMITING [None]
